FAERS Safety Report 19909905 (Version 6)
Quarter: 2022Q1

REPORT INFORMATION
  Report Type: Report from Study
  Country: US (occurrence: US)
  Receive Date: 20211003
  Receipt Date: 20220226
  Transmission Date: 20220424
  Serious: Yes (Other)
  Sender: FDA-Public Use
  Company Number: NVSC2021US221210

PATIENT
  Sex: Male

DRUGS (3)
  1. ENTRESTO [Suspect]
     Active Substance: SACUBITRIL\VALSARTAN
     Indication: Product used for unknown indication
     Dosage: UNK, BID (97/103 MG)
     Route: 048
  2. ENTRESTO [Suspect]
     Active Substance: SACUBITRIL\VALSARTAN
     Dosage: 1 DF, BID(97/103MG)
     Route: 048
     Dates: start: 20210629
  3. ENTRESTO [Suspect]
     Active Substance: SACUBITRIL\VALSARTAN
     Dosage: 1 DOSAGE FORM, BID(97/103)
     Route: 048

REACTIONS (11)
  - Neuropathy peripheral [Unknown]
  - Weight decreased [Unknown]
  - Blood sodium decreased [Unknown]
  - Malaise [Unknown]
  - Head discomfort [Unknown]
  - Palpitations [Unknown]
  - Vitamin B12 deficiency [Unknown]
  - Movement disorder [Unknown]
  - Gait disturbance [Unknown]
  - Gastrointestinal disorder [Unknown]
  - Fatigue [Unknown]
